FAERS Safety Report 5956066-0 (Version None)
Quarter: 2008Q4

REPORT INFORMATION
  Report Type: 
  Country: None (occurrence: None)
  Receive Date: 20081118
  Receipt Date: 20081110
  Transmission Date: 20090506
  Serious: Yes (Other)
  Sender: FDA-Public Use
  Company Number: US-JNJFOC-20081102594

PATIENT
  Sex: Male

DRUGS (1)
  1. TYLENOL W/ CODEINE NO. 4 [Suspect]
     Indication: PAIN
     Route: 048

REACTIONS (3)
  - ABDOMINAL PAIN [None]
  - HYPERSENSITIVITY [None]
  - MOUTH HAEMORRHAGE [None]
